FAERS Safety Report 4439067-3 (Version None)
Quarter: 2004Q3

REPORT INFORMATION
  Report Type: 
  Country: None (occurrence: None)
  Receive Date: 20040901
  Receipt Date: 20040713
  Transmission Date: 20050211
  Serious: Yes (Hospitalization)
  Sender: FDA-Public Use
  Company Number: AU-GLAXOSMITHKLINE-B0339775A

PATIENT
  Age: 58 Year
  Sex: Female
  Weight: 87 kg

DRUGS (6)
  1. ZYBAN [Suspect]
     Indication: SMOKING CESSATION THERAPY
     Dosage: 150MG SEE DOSAGE TEXT
     Route: 048
     Dates: start: 20040630, end: 20040705
  2. LIPITOR [Concomitant]
     Indication: CORONARY ARTERY DISEASE
     Dosage: 40G PER DAY
     Route: 048
  3. LOPID [Concomitant]
     Indication: CORONARY ARTERY DISEASE
     Dosage: 60G TWICE PER DAY
     Route: 048
  4. PARIET [Concomitant]
     Indication: ILL-DEFINED DISORDER
     Dosage: 20G TWICE PER DAY
     Route: 048
  5. ENDEP [Concomitant]
     Indication: SLEEP DISORDER
     Dosage: 10G AS REQUIRED
     Route: 048
  6. PREMARIN [Concomitant]
     Indication: HORMONE REPLACEMENT THERAPY

REACTIONS (8)
  - AMNESIA [None]
  - BLOOD PRESSURE DECREASED [None]
  - CARDIAC FLUTTER [None]
  - CHEST PAIN [None]
  - FEELING ABNORMAL [None]
  - HEADACHE [None]
  - HIATUS HERNIA [None]
  - INSOMNIA [None]
